FAERS Safety Report 8882044 (Version 1)
Quarter: 2012Q4

REPORT INFORMATION
  Report Type: 
  Country: US (occurrence: US)
  Receive Date: 20121105
  Receipt Date: 20121105
  Transmission Date: 20130627
  Serious: Yes (Congenital Anomaly)
  Sender: FDA-Public Use
  Company Number: US-TEVA-321081USA

PATIENT
  Age: 0 Year
  Weight: 3.16 kg

DRUGS (2)
  1. COPAXONE [Suspect]
     Route: 065
  2. PRENATAL VITAMIN [Concomitant]
     Dates: start: 201202

REACTIONS (1)
  - Hip dysplasia [Unknown]
